FAERS Safety Report 15567494 (Version 1)
Quarter: 2018Q4

REPORT INFORMATION
  Report Type: Spontaneous
  Country: US (occurrence: US)
  Receive Date: 20181030
  Receipt Date: 20181030
  Transmission Date: 20190205
  Serious: No
  Sender: FDA-Public Use
  Company Number: US-BAUSCH-BL-2018-028071

PATIENT
  Age: 56 Year
  Sex: Female
  Weight: 49.94 kg

DRUGS (1)
  1. NEOMYCIN AND POLYMYXIN B SULFATES AND HYDROCORTISONE [Suspect]
     Active Substance: HYDROCORTISONE\NEOMYCIN SULFATE\POLYMYXIN B SULFATE
     Indication: PRODUCT USED FOR UNKNOWN INDICATION
     Dosage: INSTILLED ONE DROP OF OTIC SOLUTION IN EYE
     Route: 047
     Dates: start: 20181009

REACTIONS (4)
  - Ocular hyperaemia [Recovering/Resolving]
  - Wrong product administered [Unknown]
  - Eye irritation [Recovering/Resolving]
  - Eye pain [Not Recovered/Not Resolved]

NARRATIVE: CASE EVENT DATE: 201810
